FAERS Safety Report 15108552 (Version 2)
Quarter: 2018Q3

REPORT INFORMATION
  Report Type: Report from Study
  Country: IT (occurrence: IT)
  Receive Date: 20180705
  Receipt Date: 20180813
  Transmission Date: 20181010
  Serious: Yes (Hospitalization)
  Sender: FDA-Public Use
  Company Number: IT-TEVA-2018-IT-918725

PATIENT
  Age: 17 Year
  Sex: Female

DRUGS (3)
  1. PREGABALIN. [Suspect]
     Active Substance: PREGABALIN
     Indication: DRUG ABUSE
     Route: 048
     Dates: start: 20180207, end: 20180207
  2. ACARBOSE. [Suspect]
     Active Substance: ACARBOSE
     Indication: DRUG ABUSE
     Route: 048
     Dates: start: 20180207, end: 20180207
  3. KETOPROFEN. [Suspect]
     Active Substance: KETOPROFEN
     Indication: DRUG ABUSE
     Route: 048
     Dates: start: 20180207, end: 20180207

REACTIONS (3)
  - Intentional self-injury [Recovering/Resolving]
  - Hyperuricaemia [Recovering/Resolving]
  - Suicide attempt [Recovering/Resolving]

NARRATIVE: CASE EVENT DATE: 20180207
